FAERS Safety Report 6371190-9 (Version None)
Quarter: 2009Q3

REPORT INFORMATION
  Report Type: 
  Country: None (occurrence: None)
  Receive Date: 20090923
  Receipt Date: 20080424
  Transmission Date: 20100115
  Serious: Yes (Other)
  Sender: FDA-Public Use
  Company Number: US-ASTRAZENECA-2007UW03743

PATIENT
  Age: 12046 Day
  Sex: Male

DRUGS (7)
  1. SEROQUEL [Suspect]
     Indication: DEPRESSION
     Route: 048
     Dates: start: 20040101, end: 20060117
  2. SEROQUEL [Suspect]
     Route: 048
     Dates: start: 20040622
  3. ZYPREXA [Concomitant]
     Route: 048
     Dates: start: 20030101, end: 20040101
  4. RISPERDAL [Concomitant]
     Route: 048
     Dates: start: 20030101, end: 20040101
  5. PAXIL [Concomitant]
     Route: 048
     Dates: start: 20040914
  6. PAXIL CR [Concomitant]
     Route: 048
     Dates: start: 20040622
  7. IMIPRAMINE [Concomitant]
     Route: 048
     Dates: start: 20050601

REACTIONS (2)
  - PANCREATITIS [None]
  - PANCREATITIS ACUTE [None]
